FAERS Safety Report 12894718 (Version 2)
Quarter: 2016Q4

REPORT INFORMATION
  Report Type: Spontaneous
  Country: DK (occurrence: DK)
  Receive Date: 20161028
  Receipt Date: 20161115
  Transmission Date: 20170207
  Serious: Yes (Death, Hospitalization)
  Sender: FDA-Public Use
  Company Number: DK-TEVA-707445ISR

PATIENT
  Age: 18 Year
  Sex: Female

DRUGS (7)
  1. ORIFIRIL [Concomitant]
     Active Substance: VALPROATE SODIUM
     Indication: SEIZURE
     Route: 065
  2. VENLAFAXINE [Suspect]
     Active Substance: VENLAFAXINE HYDROCHLORIDE
     Indication: SUICIDE ATTEMPT
     Dosage: 22G APPROXIMATELY
     Route: 048
  3. NOREPINEPHRINE [Concomitant]
     Active Substance: NOREPINEPHRINE\NOREPINEPHRINE BITARTRATE
     Indication: HYPOTENSION
     Dosage: INCREASED TO 0.21 MICROGRAMS/KG
     Route: 065
  4. NOREPINEPHRINE [Concomitant]
     Active Substance: NOREPINEPHRINE\NOREPINEPHRINE BITARTRATE
     Indication: HYPOTENSION
     Dosage: STARTING DOSE NOT STATED
     Route: 065
  5. NATRIUMVALPROAT [Concomitant]
  6. FOSPHENYTOIN [Suspect]
     Active Substance: FOSPHENYTOIN\FOSPHENYTOIN SODIUM
     Indication: SEIZURE
     Route: 065
  7. DIAZEPAM. [Concomitant]
     Active Substance: DIAZEPAM
     Indication: SEIZURE
     Route: 065

REACTIONS (23)
  - Hepatic failure [Fatal]
  - Seizure [Unknown]
  - Rhabdomyolysis [Unknown]
  - Acidosis [Unknown]
  - Ventricular fibrillation [Unknown]
  - Renal impairment [Unknown]
  - Nystagmus [Unknown]
  - Overdose [Fatal]
  - Suicide attempt [Fatal]
  - Hyperkalaemia [Unknown]
  - Sinus tachycardia [Unknown]
  - Coma [Unknown]
  - Ear disorder [Unknown]
  - Cardiac failure [Fatal]
  - Hyperthermia [Unknown]
  - Bradycardia [Fatal]
  - Cardiac arrest [Recovered/Resolved]
  - Electrocardiogram ST segment depression [Unknown]
  - Serotonin syndrome [Unknown]
  - Hypotension [Unknown]
  - Hypokinesia [Unknown]
  - Electrocardiogram QT prolonged [Unknown]
  - Vestibular disorder [Unknown]
